FAERS Safety Report 6372746-X (Version None)
Quarter: 2009Q3

REPORT INFORMATION
  Report Type: 
  Country: None (occurrence: None)
  Receive Date: 20090924
  Receipt Date: 20081023
  Transmission Date: 20100115
  Serious: No
  Sender: FDA-Public Use
  Company Number: US-ASTRAZENECA-2008UW23620

PATIENT
  Age: 70 Year
  Sex: Male
  Weight: 84.4 kg

DRUGS (3)
  1. SEROQUEL [Suspect]
     Indication: BIPOLAR DISORDER
     Dosage: 50MG AND 100MG
     Route: 048
  2. ALPRAZOLAM [Concomitant]
  3. FLOMAX [Concomitant]

REACTIONS (3)
  - DIZZINESS [None]
  - HANGOVER [None]
  - POLLAKIURIA [None]
